FAERS Safety Report 9156851 (Version 1)
Quarter: 2013Q1

REPORT INFORMATION
  Report Type: Spontaneous
  Country: US (occurrence: US)
  Receive Date: 20130312
  Receipt Date: 20130312
  Transmission Date: 20140127
  Serious: Yes (Hospitalization)
  Sender: FDA-Public Use
  Company Number: US-BAYER-2013-028336

PATIENT
  Age: 22 Year
  Sex: Female
  Weight: 58.5 kg

DRUGS (5)
  1. YASMIN [Suspect]
     Indication: MENSTRUAL CYCLE MANAGEMENT
  2. ZITHROMAX [Concomitant]
     Dosage: 250 MG, UNK
     Route: 048
  3. ZOLOFT [Concomitant]
     Indication: ANXIETY
     Dosage: 25 MG, UNK
     Route: 048
  4. PROZAC [Concomitant]
     Route: 048
  5. AMOXICILLIN [Concomitant]

REACTIONS (2)
  - Pulmonary embolism [Recovering/Resolving]
  - Deep vein thrombosis [None]
